FAERS Safety Report 16682077 (Version 1)
Quarter: 2019Q3

REPORT INFORMATION
  Report Type: Spontaneous
  Country: DE (occurrence: DE)
  Receive Date: 20190808
  Receipt Date: 20190808
  Transmission Date: 20191004
  Serious: Yes (Other)
  Sender: FDA-Public Use
  Company Number: DE-TEVA-2019-DE-1087872

PATIENT
  Age: 34 Year
  Sex: Female

DRUGS (7)
  1. IBUPROFEN. [Suspect]
     Active Substance: IBUPROFEN
     Indication: MIGRAINE
     Route: 065
  2. PARACETAMOL [Suspect]
     Active Substance: ACETAMINOPHEN
     Indication: MIGRAINE
     Route: 065
  3. PETADOLEX [Suspect]
     Active Substance: HERBALS
     Indication: MIGRAINE
     Dosage: 50 MILLIGRAM DAILY;
     Route: 065
  4. FENISTIL [Concomitant]
     Active Substance: DIMETHINDENE
     Route: 065
  5. HYPERFORAT [Suspect]
     Active Substance: HYPERICUM PERFORATUM
     Route: 065
  6. ACETYLSALICYLIC ACID [Suspect]
     Active Substance: ASPIRIN
     Indication: MIGRAINE
     Route: 065
  7. METOCLOPRAMIDE. [Concomitant]
     Active Substance: METOCLOPRAMIDE
     Route: 065

REACTIONS (2)
  - Hepatic necrosis [Recovering/Resolving]
  - Hepatitis cholestatic [Recovering/Resolving]
